FAERS Safety Report 7232859-7 (Version None)
Quarter: 2011Q1

REPORT INFORMATION
  Report Type: 
  Country: None (occurrence: None)
  Receive Date: 20110119
  Receipt Date: 20110105
  Transmission Date: 20110831
  Serious: No
  Sender: FDA-Public Use
  Company Number: US-B.I. PHARMACEUTICALS,INC./RIDGEFIELD-2011-BP-00721BP

PATIENT
  Sex: Female

DRUGS (5)
  1. NORVASC [Concomitant]
     Indication: HYPERTENSION
  2. HYDROCHLOROTHIAZIDE [Concomitant]
     Indication: HYPERTENSION
  3. PRADAXA [Suspect]
     Indication: ATRIAL FIBRILLATION
     Dosage: 300 MG
     Route: 048
     Dates: start: 20101101
  4. THYROID MEDICATION [Concomitant]
     Indication: THYROID DISORDER
  5. TOPROL-XL [Concomitant]
     Indication: HYPERTENSION

REACTIONS (1)
  - CHEST DISCOMFORT [None]
